FAERS Safety Report 9200948 (Version 1)
Quarter: 2013Q2

REPORT INFORMATION
  Report Type: Spontaneous
  Country: GB (occurrence: GB)
  Receive Date: 20130401
  Receipt Date: 20130401
  Transmission Date: 20140414
  Serious: Yes (Other)
  Sender: FDA-Public Use
  Company Number: GB-JNJFOC-20130315158

PATIENT
  Age: 72 Year
  Sex: Female
  Weight: 46 kg

DRUGS (12)
  1. XARELTO [Suspect]
     Indication: THROMBOSIS PROPHYLAXIS
     Route: 048
     Dates: start: 20130220, end: 20130304
  2. XARELTO [Suspect]
     Indication: HIP ARTHROPLASTY
     Route: 048
     Dates: start: 20130220, end: 20130304
  3. PARACETAMOL [Concomitant]
     Route: 048
  4. TRAMADOL HYDROCHLORIDE [Concomitant]
     Route: 048
  5. ZANTAC [Concomitant]
     Route: 048
  6. PREDNISOLONE [Concomitant]
     Route: 048
  7. PREDNISOLONE [Concomitant]
     Route: 048
  8. FEXOFENADINE HYDROCHLORIDE [Concomitant]
     Route: 048
  9. DIHYDROCODEINE [Concomitant]
     Route: 048
  10. ALENDRONIC ACID [Concomitant]
     Route: 065
  11. ADCAL [Concomitant]
     Route: 048
  12. LISINOPRIL [Concomitant]
     Route: 048

REACTIONS (1)
  - Diarrhoea [Not Recovered/Not Resolved]
